FAERS Safety Report 13579525 (Version 1)
Quarter: 2017Q2

REPORT INFORMATION
  Report Type: Spontaneous
  Country: US (occurrence: US)
  Receive Date: 20170524
  Receipt Date: 20170524
  Transmission Date: 20170830
  Serious: Yes (Other)
  Sender: FDA-Public Use
  Company Number: None

PATIENT
  Age: 68 Year
  Sex: Female

DRUGS (1)
  1. CAPECITABINE. [Suspect]
     Active Substance: CAPECITABINE
     Indication: NEOPLASM MALIGNANT
     Route: 048
     Dates: start: 20151106, end: 20170520

REACTIONS (3)
  - Palmar-plantar erythrodysaesthesia syndrome [None]
  - Swelling [None]
  - Wound secretion [None]

NARRATIVE: CASE EVENT DATE: 20170524
